FAERS Safety Report 12130507 (Version 1)
Quarter: 2016Q1

REPORT INFORMATION
  Report Type: Spontaneous
  Country: PL (occurrence: PL)
  Receive Date: 20160301
  Receipt Date: 20160301
  Transmission Date: 20160526
  Serious: Yes (Hospitalization, Other)
  Sender: FDA-Public Use
  Company Number: PL-JNJFOC-20160216714

PATIENT
  Age: 82 Year
  Sex: Male
  Weight: 85 kg

DRUGS (17)
  1. XARELTO [Suspect]
     Active Substance: RIVAROXABAN
     Indication: ATRIAL FIBRILLATION
     Route: 048
     Dates: start: 20151014, end: 20151221
  2. VEROSPIRON [Concomitant]
     Active Substance: SPIRONOLACTONE
     Indication: HYPERTENSION
     Route: 065
     Dates: start: 2014, end: 20151221
  3. NITRENDIPINE [Concomitant]
     Active Substance: NITRENDIPINE
     Route: 065
  4. TARDYFERON [Concomitant]
     Active Substance: FERROUS SULFATE\FOLIC ACID
     Route: 065
  5. DOXAZOSIN [Concomitant]
     Active Substance: DOXAZOSIN\DOXAZOSIN MESYLATE
     Indication: BENIGN PROSTATIC HYPERPLASIA
     Route: 065
     Dates: start: 2009
  6. THYROZOL [Concomitant]
     Active Substance: METHIMAZOLE
     Indication: HYPERTENSION
     Route: 065
     Dates: start: 2014, end: 20151221
  7. CARVEDILOL. [Concomitant]
     Active Substance: CARVEDILOL
     Indication: CORONARY ARTERY DISEASE
     Route: 065
     Dates: start: 2014
  8. CLEXANE [Suspect]
     Active Substance: ENOXAPARIN SODIUM
     Indication: PRODUCT USED FOR UNKNOWN INDICATION
     Route: 065
     Dates: start: 201512
  9. RAMIPRIL. [Concomitant]
     Active Substance: RAMIPRIL
     Indication: HYPERTENSION
     Route: 065
     Dates: start: 2014, end: 20151221
  10. XARELTO [Suspect]
     Active Substance: RIVAROXABAN
     Indication: CEREBROVASCULAR ACCIDENT PROPHYLAXIS
     Route: 048
     Dates: start: 20151014, end: 20151221
  11. ATORVASTATIN [Concomitant]
     Active Substance: ATORVASTATIN
     Indication: HYPERLIPIDAEMIA
     Route: 065
     Dates: start: 2014
  12. PLAVIX [Concomitant]
     Active Substance: CLOPIDOGREL BISULFATE
     Route: 065
     Dates: start: 201512
  13. TERTENSIF [Concomitant]
     Route: 065
  14. PYLERA [Concomitant]
     Active Substance: BISMUTH SUBCITRATE POTASSIUM\METRONIDAZOLE\TETRACYCLINE HYDROCHLORIDE
     Route: 065
  15. PANTOPRAZOLE [Concomitant]
     Active Substance: PANTOPRAZOLE SODIUM
     Indication: PEPTIC ULCER
     Route: 065
     Dates: start: 2015, end: 20151221
  16. PANTOPRAZOLE [Concomitant]
     Active Substance: PANTOPRAZOLE SODIUM
     Indication: PEPTIC ULCER
     Route: 065
  17. MONONIT [Concomitant]
     Indication: CORONARY ARTERY DISEASE
     Route: 065
     Dates: start: 2014, end: 20151221

REACTIONS (5)
  - Anaemia [Recovered/Resolved]
  - Iron deficiency [Unknown]
  - Melaena [Recovered/Resolved]
  - Haemoglobin decreased [Unknown]
  - Helicobacter infection [Unknown]

NARRATIVE: CASE EVENT DATE: 201512
